FAERS Safety Report 7587553-X (Version None)
Quarter: 2011Q3

REPORT INFORMATION
  Report Type: 
  Country: None (occurrence: None)
  Receive Date: 20110704
  Receipt Date: 20110620
  Transmission Date: 20111222
  Serious: Yes (Other)
  Sender: FDA-Public Use
  Company Number: PHHY2011DE54809

PATIENT
  Age: 63 Year
  Sex: Male

DRUGS (3)
  1. IBANDRONATE SODIUM [Suspect]
     Dates: start: 20061005, end: 20070710
  2. ZOMETA [Suspect]
     Route: 042
     Dates: start: 20060601, end: 20060601
  3. SORAFENIB [Concomitant]
     Dates: start: 20050201

REACTIONS (1)
  - OSTEONECROSIS OF JAW [None]
